FAERS Safety Report 5088014-2 (Version None)
Quarter: 2006Q3

REPORT INFORMATION
  Report Type: 
  Country: None (occurrence: None)
  Receive Date: 20060821
  Receipt Date: 20060810
  Transmission Date: 20061208
  Serious: Yes (Hospitalization)
  Sender: FDA-Public Use
  Company Number: GXKR2006US04674

PATIENT
  Age: 67 Year
  Sex: Female

DRUGS (5)
  1. DOXORUBICIN HCL [Suspect]
     Dosage: 4 CYCLES
  2. PACLITAXEL [Suspect]
     Dosage: 4 CYCLES, INFUSION
  3. DEXAMETHASONE [Suspect]
     Dosage: 20 MG ORAL ; 20 MG INTRAVENOUS ; 10 MG ORAL
     Route: 048
  4. CYCLOPHOSPHAMIDE [Suspect]
     Dosage: 4 CYCLES
  5. NEULASTA [Suspect]
     Dosage: 6 MG, ON DAY 2, SUBCUTANEOUS
     Route: 058

REACTIONS (2)
  - DYSPNOEA [None]
  - LEUKOCYTOSIS [None]
